FAERS Safety Report 9936868 (Version 1)
Quarter: 2014Q1

REPORT INFORMATION
  Report Type: Spontaneous
  Country: US (occurrence: None)
  Receive Date: 20140115
  Receipt Date: 20140115
  Transmission Date: 20141002
  Serious: Yes (Other)
  Sender: FDA-Public Use
  Company Number: DAV-AE-MTX-13-37

PATIENT
  Age: 44 Year
  Sex: Female

DRUGS (1)
  1. METHOTREXATE [Suspect]
     Indication: SYSTEMIC LUPUS ERYTHEMATOSUS
     Dosage: 12.5MG (5TABS/1X/WK), ORAL
     Route: 048
     Dates: start: 20130513

REACTIONS (3)
  - Swollen tongue [None]
  - Angioedema [None]
  - Hypersensitivity [None]
